FAERS Safety Report 13666691 (Version 1)
Quarter: 2017Q2

REPORT INFORMATION
  Report Type: Spontaneous
  Country: US (occurrence: US)
  Receive Date: 20170619
  Receipt Date: 20170619
  Transmission Date: 20170830
  Serious: No
  Sender: FDA-Public Use
  Company Number: US-ROCHE-1245708

PATIENT
  Sex: Male

DRUGS (1)
  1. XELODA [Suspect]
     Active Substance: CAPECITABINE
     Indication: COLON CANCER
     Dosage: 3 TABLETS (STRENGHT 500 MG) AND 2 TABLETS (STRENGHT: 150 MG) 2 WEEKS ON 1 WEEK OFF.
     Route: 048

REACTIONS (4)
  - Eye pain [Unknown]
  - Paraesthesia [Unknown]
  - Photophobia [Unknown]
  - Temperature intolerance [Unknown]
